FAERS Safety Report 10234322 (Version 1)
Quarter: 2014Q2

REPORT INFORMATION
  Report Type: Spontaneous
  Country: US (occurrence: US)
  Receive Date: 20140612
  Receipt Date: 20140612
  Transmission Date: 20141212
  Serious: Yes (Life-Threatening, Hospitalization, Other)
  Sender: FDA-Public Use
  Company Number: US-RB-068523-14

PATIENT
  Age: 24 Month
  Sex: Male

DRUGS (1)
  1. SUBOXONE TABLET [Suspect]
     Indication: ACCIDENTAL EXPOSURE TO PRODUCT BY CHILD
     Dosage: DOSING DETAILS UNKNOWN
     Route: 048
     Dates: start: 201405, end: 201405

REACTIONS (3)
  - Accidental exposure to product by child [Not Recovered/Not Resolved]
  - Respiratory disorder [Not Recovered/Not Resolved]
  - Brain oedema [Not Recovered/Not Resolved]
